FAERS Safety Report 10957566 (Version 1)
Quarter: 2015Q1

REPORT INFORMATION
  Report Type: Spontaneous
  Country: US (occurrence: US)
  Receive Date: 20150326
  Receipt Date: 20150326
  Transmission Date: 20150721
  Serious: Yes (Death, Other)
  Sender: FDA-Public Use
  Company Number: US-ASTRAZENECA-2014SE56431

PATIENT
  Age: 830 Month
  Sex: Female

DRUGS (14)
  1. BYETTA [Suspect]
     Active Substance: EXENATIDE
     Dosage: UNK
     Route: 065
     Dates: start: 2010, end: 2011
  2. CAPTOPRIL. [Concomitant]
     Active Substance: CAPTOPRIL
     Route: 048
     Dates: start: 20110508
  3. HYDROCHLOROTHIAZIDE. [Concomitant]
     Active Substance: HYDROCHLOROTHIAZIDE
     Route: 048
     Dates: start: 20110508
  4. ALBUTEROL SULFATE. [Concomitant]
     Active Substance: ALBUTEROL SULFATE
     Dates: start: 20110508
  5. PRAVACHOL [Concomitant]
     Active Substance: PRAVASTATIN SODIUM
     Dates: start: 20100426
  6. AMLODIPINE BESYLATE/ NORVASC [Concomitant]
     Route: 048
     Dates: start: 20110508
  7. VICTOZA [Suspect]
     Active Substance: LIRAGLUTIDE
     Dosage: UNK
     Route: 065
     Dates: start: 2010, end: 2011
  8. DILAUDID [Concomitant]
     Active Substance: HYDROMORPHONE HYDROCHLORIDE
     Dates: start: 20110509
  9. JANUVIA [Suspect]
     Active Substance: SITAGLIPTIN PHOSPHATE
     Dosage: UNK
     Route: 065
     Dates: start: 2010, end: 2011
  10. JANUMET [Suspect]
     Active Substance: METFORMIN HYDROCHLORIDE\SITAGLIPTIN PHOSPHATE
     Dosage: UNK
     Route: 065
     Dates: start: 2010, end: 2011
  11. LOPRESSOR/METOPROLOL TARTRATE [Concomitant]
     Route: 048
     Dates: start: 20110508
  12. GLYBURIDE/METFORMIN HCL [Concomitant]
     Dosage: 5-500 MG TWO TIMES A DAY
     Route: 048
     Dates: start: 20110508
  13. ASPIRIN. [Concomitant]
     Active Substance: ASPIRIN
     Route: 048
     Dates: start: 20110508
  14. GLUCOVANCE [Concomitant]
     Active Substance: GLYBURIDE\METFORMIN HYDROCHLORIDE
     Dosage: 5-500 BID
     Dates: start: 20100426

REACTIONS (3)
  - Pancreatic carcinoma metastatic [Fatal]
  - Hepatic cancer metastatic [Unknown]
  - Stomach mass [Unknown]

NARRATIVE: CASE EVENT DATE: 201104
